FAERS Safety Report 15123114 (Version 1)
Quarter: 2018Q3

REPORT INFORMATION
  Report Type: Spontaneous
  Country: FR (occurrence: FR)
  Receive Date: 20180709
  Receipt Date: 20180709
  Transmission Date: 20181010
  Serious: Yes (Hospitalization)
  Sender: FDA-Public Use
  Company Number: PHHY2018FR036443

PATIENT
  Age: 58 Year
  Sex: Male

DRUGS (8)
  1. ESIDREX [Suspect]
     Active Substance: HYDROCHLOROTHIAZIDE
     Indication: HYPERTENSION
     Dosage: 12.5 MG, QD
     Route: 048
     Dates: end: 201712
  2. LANSOPRAZOLE ZYDUS [Concomitant]
     Indication: GASTROOESOPHAGEAL REFLUX DISEASE
     Dosage: 15 MG, QD
     Route: 048
  3. LEVETIRACETAM ZYDUS [Concomitant]
     Indication: GENERALISED TONIC-CLONIC SEIZURE
     Dosage: 500 MG, QD
     Route: 048
  4. TIORFANOR [Concomitant]
     Active Substance: RACECADOTRIL
     Indication: PRODUCT USED FOR UNKNOWN INDICATION
     Dosage: 2 DF, QD
     Route: 048
  5. PREDNISOLONE METASULFOBENZOATE SODIUM [Concomitant]
     Active Substance: PREDNISOLONE SODIUM METAZOATE
     Indication: PRODUCT USED FOR UNKNOWN INDICATION
     Dosage: 70 MG, QD
     Route: 048
     Dates: start: 20171226, end: 20171228
  6. DESLORATADINE. [Concomitant]
     Active Substance: DESLORATADINE
     Indication: PRODUCT USED FOR UNKNOWN INDICATION
     Dosage: 5 MG, QD
     Route: 048
     Dates: start: 20171226, end: 20180104
  7. ACIDE FOLIQUE ARROW [Concomitant]
     Active Substance: FOLIC ACID
     Indication: ALCOHOLISM
     Dosage: 5 MG, QD
     Route: 048
  8. LISINOPRIL BIOGARAN [Suspect]
     Active Substance: LISINOPRIL
     Indication: HYPERTENSION
     Dosage: 20 MG, QD
     Route: 048
     Dates: end: 201712

REACTIONS (3)
  - Acute kidney injury [Recovered/Resolved]
  - Orthostatic hypotension [Recovered/Resolved]
  - Hyponatraemia [Recovered/Resolved]

NARRATIVE: CASE EVENT DATE: 201712
